FAERS Safety Report 11133290 (Version 3)
Quarter: 2015Q2

REPORT INFORMATION
  Report Type: Spontaneous
  Country: FR (occurrence: FR)
  Receive Date: 20150522
  Receipt Date: 20150601
  Transmission Date: 20150821
  Serious: Yes (Other)
  Sender: FDA-Public Use
  Company Number: FR-009507513-1505FRA008079

PATIENT
  Age: 53 Year
  Sex: Male

DRUGS (15)
  1. MABTHERA [Suspect]
     Active Substance: RITUXIMAB
     Indication: PRODUCT USED FOR UNKNOWN INDICATION
     Dosage: 780 MG, UNKNOWN
     Route: 042
     Dates: start: 20150303, end: 20150303
  2. OXALIPLATIN. [Suspect]
     Active Substance: OXALIPLATIN
     Indication: PRODUCT USED FOR UNKNOWN INDICATION
     Dosage: 270 MG, UNKNOWN
     Route: 042
     Dates: start: 20150303, end: 20150303
  3. AUGMENTIN [Suspect]
     Active Substance: AMOXICILLIN\CLAVULANATE POTASSIUM
     Indication: PRODUCT USED FOR UNKNOWN INDICATION
     Dosage: 1 G, UNKNOWN
     Route: 048
     Dates: start: 20150311, end: 20150311
  4. ZELITREX [Suspect]
     Active Substance: VALACYCLOVIR HYDROCHLORIDE
     Indication: PRODUCT USED FOR UNKNOWN INDICATION
     Dosage: 1 DF, 2 IN 1 DAY
     Route: 048
     Dates: start: 20150303, end: 20150317
  5. ZOPHREN (ONDANSETRON) [Concomitant]
     Active Substance: ONDANSETRON
     Indication: PRODUCT USED FOR UNKNOWN INDICATION
     Dosage: 8 MG, 2 IN 1 D
     Route: 065
     Dates: start: 20150303, end: 20150304
  6. XYZALL [Suspect]
     Active Substance: LEVOCETIRIZINE DIHYDROCHLORIDE
     Indication: PRODUCT USED FOR UNKNOWN INDICATION
     Dosage: 5 MG, UNKNOWN
     Route: 065
     Dates: start: 20150303
  7. DEXAMETHASONE. [Suspect]
     Active Substance: DEXAMETHASONE
     Indication: PRODUCT USED FOR UNKNOWN INDICATION
     Dosage: 40 MG, 1 IN 1 DAY
     Route: 048
     Dates: start: 20150305, end: 20150306
  8. ZYLORIC [Suspect]
     Active Substance: ALLOPURINOL
     Dosage: 100 MG, 1 IN 1 DAY
     Route: 048
     Dates: start: 20150313, end: 20150316
  9. ZYLORIC [Suspect]
     Active Substance: ALLOPURINOL
     Indication: PRODUCT USED FOR UNKNOWN INDICATION
     Dosage: 1 DOSAGE FORM, 1 IN 1 DAY, 300 MG DAILY
     Route: 048
     Dates: start: 20150303, end: 20150316
  10. SOLU-MEDROL [Suspect]
     Active Substance: METHYLPREDNISOLONE SODIUM SUCCINATE
     Indication: PRODUCT USED FOR UNKNOWN INDICATION
     Dosage: 80 MG, UNKNOWN
     Route: 042
     Dates: start: 20150303, end: 20150304
  11. NEULASTA [Suspect]
     Active Substance: PEGFILGRASTIM
     Indication: PRODUCT USED FOR UNKNOWN INDICATION
     Dosage: 6 MG, 1 IN 1 TOTAL
     Route: 058
     Dates: start: 20150306, end: 20150306
  12. BACTRIM [Suspect]
     Active Substance: SULFAMETHOXAZOLE\TRIMETHOPRIM
     Indication: PRODUCT USED FOR UNKNOWN INDICATION
     Dosage: 1 DF, 1 IN 2 DAYS (DAILY DOSE: 0.5 DOSAGE FORM)
     Route: 048
     Dates: start: 20150303, end: 20150313
  13. CEFOTAXIME SODIUM [Suspect]
     Active Substance: CEFOTAXIME SODIUM
     Indication: PRODUCT USED FOR UNKNOWN INDICATION
     Dosage: 2 GRAM (GM), Q8H
     Route: 042
     Dates: start: 20150312, end: 20150315
  14. ARACYTINE [Suspect]
     Active Substance: CYTARABINE
     Indication: PRODUCT USED FOR UNKNOWN INDICATION
     Dosage: 4250 MG, 2 IN 1 DAY
     Route: 042
     Dates: start: 20150304, end: 20150304
  15. ACETAMINOPHEN. [Concomitant]
     Active Substance: ACETAMINOPHEN
     Indication: PRODUCT USED FOR UNKNOWN INDICATION
     Dosage: 1 G, UNKNOWN
     Route: 065
     Dates: start: 20150303

REACTIONS (3)
  - Hyperthermia [Recovered/Resolved]
  - Rash morbilliform [Recovered/Resolved]
  - Oedema peripheral [Recovered/Resolved]

NARRATIVE: CASE EVENT DATE: 20150313
